FAERS Safety Report 5187437-0 (Version None)
Quarter: 2006Q4

REPORT INFORMATION
  Report Type: 
  Country: None (occurrence: None)
  Receive Date: 20061220
  Receipt Date: 20060223
  Transmission Date: 20070319
  Serious: No
  Sender: FDA-Public Use
  Company Number: US-AMGEN-US169983

PATIENT
  Sex: Male

DRUGS (1)
  1. ENBREL [Suspect]
     Indication: PSORIASIS
     Route: 065
     Dates: start: 20060101, end: 20060301

REACTIONS (4)
  - HERPES ZOSTER [None]
  - MYELODYSPLASTIC SYNDROME [None]
  - NASOPHARYNGITIS [None]
  - SNEEZING [None]
